FAERS Safety Report 17442463 (Version 2)
Quarter: 2020Q1

REPORT INFORMATION
  Report Type: Spontaneous
  Country: US (occurrence: US)
  Receive Date: 20200220
  Receipt Date: 20200331
  Transmission Date: 20200409
  Serious: Yes (Life-Threatening, Other)
  Sender: FDA-Public Use
  Company Number: US-SPROUT PHARMACEUTICALS, INC.-2020SP000020

PATIENT
  Age: 40 Year
  Sex: Female
  Weight: 82.17 kg

DRUGS (1)
  1. ADDYI [Suspect]
     Active Substance: FLIBANSERIN
     Indication: LIBIDO DECREASED
     Route: 048
     Dates: end: 202002

REACTIONS (7)
  - Dyspnoea [Recovered/Resolved]
  - Impaired driving ability [Recovered/Resolved]
  - Memory impairment [Recovered/Resolved]
  - Anaphylactic reaction [Recovered/Resolved]
  - Headache [Recovered/Resolved]
  - Hypersensitivity [Recovered/Resolved]
  - Intentional product use issue [Recovered/Resolved]
